FAERS Safety Report 25699381 (Version 1)
Quarter: 2025Q3

REPORT INFORMATION
  Report Type: Spontaneous
  Country: IN (occurrence: IN)
  Receive Date: 20250819
  Receipt Date: 20250819
  Transmission Date: 20251020
  Serious: Yes (Hospitalization, Other)
  Sender: RANBAXY
  Company Number: IN-SUN PHARMACEUTICAL INDUSTRIES LTD-2025R1-523005

PATIENT
  Age: 44 Year
  Sex: Male

DRUGS (1)
  1. ZOLPIDEM [Suspect]
     Active Substance: ZOLPIDEM TARTRATE
     Indication: Insomnia
     Dosage: 10 MILLIGRAM, QD (AT BEDTIME )
     Route: 065

REACTIONS (1)
  - Behavioural induced insufficient sleep syndrome [Recovering/Resolving]
